FAERS Safety Report 15276792 (Version 3)
Quarter: 2018Q3

REPORT INFORMATION
  Report Type: Spontaneous
  Country: US (occurrence: US)
  Receive Date: 20180814
  Receipt Date: 20180910
  Transmission Date: 20181010
  Serious: Yes (Other)
  Sender: FDA-Public Use
  Company Number: US-PFIZER INC-2018323388

PATIENT
  Sex: Female

DRUGS (1)
  1. TIKOSYN [Suspect]
     Active Substance: DOFETILIDE
     Indication: ATRIAL FIBRILLATION
     Dosage: 250 MG, TWICE A DAY
     Route: 048

REACTIONS (7)
  - Kidney infection [Unknown]
  - Bone swelling [Recovering/Resolving]
  - Gastric disorder [Unknown]
  - Urinary tract infection [Unknown]
  - Overdose [Unknown]
  - Weight decreased [Unknown]
  - Protein total increased [Unknown]

NARRATIVE: CASE EVENT DATE: 2017
